FAERS Safety Report 6090748-8 (Version None)
Quarter: 2009Q1

REPORT INFORMATION
  Report Type: 
  Country: None (occurrence: None)
  Receive Date: 20090224
  Receipt Date: 20090202
  Transmission Date: 20090719
  Serious: No
  Sender: FDA-Public Use
  Company Number: US-ABBOTT-09P-163-0501258-00

PATIENT
  Sex: Male

DRUGS (7)
  1. SIMCOR [Suspect]
     Indication: DRUG USE FOR UNKNOWN INDICATION
     Dosage: 500/20
     Dates: start: 20081221
  2. M.V.I. [Concomitant]
     Indication: DRUG USE FOR UNKNOWN INDICATION
  3. SALMON OIL [Concomitant]
     Indication: DRUG USE FOR UNKNOWN INDICATION
  4. MINOCYCLINE [Concomitant]
     Indication: DRUG USE FOR UNKNOWN INDICATION
  5. ZOLOFT [Concomitant]
     Indication: DRUG USE FOR UNKNOWN INDICATION
  6. ASPIRIN [Concomitant]
     Indication: DRUG USE FOR UNKNOWN INDICATION
  7. JUICE PLUS [Concomitant]
     Indication: DRUG USE FOR UNKNOWN INDICATION

REACTIONS (4)
  - DIARRHOEA [None]
  - FEELING HOT [None]
  - FLUSHING [None]
  - NAUSEA [None]
